FAERS Safety Report 7593820-6 (Version None)
Quarter: 2011Q3

REPORT INFORMATION
  Report Type: 
  Country: None (occurrence: None)
  Receive Date: 20110706
  Receipt Date: 20110623
  Transmission Date: 20111222
  Serious: Yes (Hospitalization)
  Sender: FDA-Public Use
  Company Number: FR-UCBSA-035180

PATIENT
  Sex: Female

DRUGS (3)
  1. NITROFURANTOIN [Suspect]
     Route: 048
     Dates: start: 20080101, end: 20110519
  2. OFLOXACIN [Concomitant]
     Indication: DYSPAREUNIA
     Dosage: 200 MG
     Route: 048
  3. KEPPRA [Suspect]
     Route: 048
     Dates: start: 20070101, end: 20110520

REACTIONS (1)
  - AUTOIMMUNE HEPATITIS [None]
